FAERS Safety Report 10891285 (Version 1)
Quarter: 2015Q1

REPORT INFORMATION
  Report Type: Report from Study
  Country: CO (occurrence: CO)
  Receive Date: 20150306
  Receipt Date: 20150306
  Transmission Date: 20150721
  Serious: Yes (Disabling)
  Sender: FDA-Public Use
  Company Number: CO-BRISTOL-MYERS SQUIBB COMPANY-BMS-2015-012790

PATIENT
  Age: 54 Year
  Sex: Male

DRUGS (1)
  1. CETUXIMAB [Suspect]
     Active Substance: CETUXIMAB
     Indication: COLORECTAL CANCER METASTATIC
     Dosage: 700 MG, UNK
     Route: 065
     Dates: start: 20150211, end: 20150215

REACTIONS (4)
  - Vomiting [Unknown]
  - Bone pain [Unknown]
  - Asthenia [Unknown]
  - Dizziness [Unknown]
